FAERS Safety Report 7600575-5 (Version None)
Quarter: 2011Q3

REPORT INFORMATION
  Report Type: 
  Country: None (occurrence: None)
  Receive Date: 20110711
  Receipt Date: 20110629
  Transmission Date: 20111222
  Serious: Yes (Other)
  Sender: FDA-Public Use
  Company Number: US-ROCHE-787313

PATIENT
  Age: 10 Year
  Sex: Male
  Weight: 40.8 kg

DRUGS (1)
  1. TAMIFLU [Suspect]
     Dosage: DURATION: 14 DAYS
     Route: 048
     Dates: start: 20091001

REACTIONS (11)
  - DYSPHAGIA [None]
  - ABASIA [None]
  - SOMNOLENCE [None]
  - EYE MOVEMENT DISORDER [None]
  - FEELING ABNORMAL [None]
  - ACTIVITIES OF DAILY LIVING IMPAIRED [None]
  - MOVEMENT DISORDER [None]
  - NASOPHARYNGITIS [None]
  - WEIGHT DECREASED [None]
  - ILL-DEFINED DISORDER [None]
  - MALAISE [None]
